FAERS Safety Report 7835489-9 (Version None)
Quarter: 2011Q4

REPORT INFORMATION
  Report Type: 
  Country: None (occurrence: None)
  Receive Date: 20111024
  Receipt Date: 20111013
  Transmission Date: 20120403
  Serious: Yes (Death)
  Sender: FDA-Public Use
  Company Number: US-BAYER-2011-099228

PATIENT
  Age: 69 Year

DRUGS (2)
  1. ALEVE (CAPLET) [Suspect]
  2. ASPIRIN [Suspect]

REACTIONS (5)
  - HAEMATOCHEZIA [None]
  - HAEMOGLOBIN DECREASED [None]
  - DUODENAL ULCER HAEMORRHAGE [None]
  - RESPIRATORY FAILURE [None]
  - PNEUMONIA [None]
